FAERS Safety Report 5215208-5 (Version None)
Quarter: 2007Q1

REPORT INFORMATION
  Report Type: 
  Country: None (occurrence: None)
  Receive Date: 20070117
  Receipt Date: 20070109
  Transmission Date: 20070707
  Serious: Yes (Hospitalization)
  Sender: FDA-Public Use
  Company Number: MEDI-0005122

PATIENT
  Age: 5 Month
  Sex: Female
  Weight: 4.5 kg

DRUGS (1)
  1. SYNAGIS [Suspect]
     Indication: ANTIVIRAL PROPHYLAXIS
     Dosage: 60 MG, INTRAMUSCULAR
     Route: 030
     Dates: start: 20061107, end: 20061107

REACTIONS (3)
  - HEART RATE INCREASED [None]
  - MENINGITIS ECHO VIRAL [None]
  - RESPIRATORY RATE INCREASED [None]
